FAERS Safety Report 6615415-0 (Version None)
Quarter: 2010Q1

REPORT INFORMATION
  Report Type: 
  Country: None (occurrence: None)
  Receive Date: 20100305
  Receipt Date: 20091111
  Transmission Date: 20100710
  Serious: Yes (Hospitalization)
  Sender: FDA-Public Use
  Company Number: A0817246A

PATIENT
  Sex: Female
  Weight: 90.9 kg

DRUGS (9)
  1. REQUIP [Suspect]
     Indication: RESTLESS LEGS SYNDROME
     Dosage: 2MG AT NIGHT
     Route: 048
     Dates: end: 20090424
  2. ROPINIROLE HYDROCHLORIDE [Suspect]
     Indication: RESTLESS LEGS SYNDROME
     Dosage: 2MG AT NIGHT
     Route: 048
     Dates: start: 20080101, end: 20090424
  3. SYNTHROID [Concomitant]
  4. DYAZIDE [Concomitant]
  5. VYTORIN [Concomitant]
  6. HYDROCODONE [Concomitant]
  7. FLEXERIL [Concomitant]
  8. LORTAB [Concomitant]
  9. LYRICA [Concomitant]

REACTIONS (1)
  - PATHOLOGICAL GAMBLING [None]
